FAERS Safety Report 12953462 (Version 1)
Quarter: 2016Q4

REPORT INFORMATION
  Report Type: Spontaneous
  Country: US (occurrence: US)
  Receive Date: 20161117
  Receipt Date: 20161117
  Transmission Date: 20170207
  Serious: No
  Sender: FDA-Public Use
  Company Number: GXBR2016US002787

PATIENT
  Sex: Female

DRUGS (1)
  1. TACROLIMUS. [Suspect]
     Active Substance: TACROLIMUS
     Indication: PEMPHIGOID
     Dosage: UNK DF, UNK
     Route: 065

REACTIONS (1)
  - Oral discomfort [Not Recovered/Not Resolved]
